FAERS Safety Report 13639083 (Version 1)
Quarter: 2017Q2

REPORT INFORMATION
  Report Type: Spontaneous
  Country: US (occurrence: US)
  Receive Date: 20170609
  Receipt Date: 20170609
  Transmission Date: 20170830
  Serious: No
  Sender: FDA-Public Use
  Company Number: US-ROCHE-1438997

PATIENT
  Sex: Male

DRUGS (11)
  1. CLONAZEPAM. [Suspect]
     Active Substance: CLONAZEPAM
     Indication: STRESS
     Route: 065
  2. KLONOPIN [Suspect]
     Active Substance: CLONAZEPAM
     Indication: ANXIETY
  3. OXCARBAZEPINE. [Concomitant]
     Active Substance: OXCARBAZEPINE
     Indication: TRIGEMINAL NEURALGIA
     Route: 065
     Dates: start: 2005
  4. BENADRYL [Concomitant]
     Active Substance: DIPHENHYDRAMINE HYDROCHLORIDE
     Indication: SLEEP DISORDER
     Dosage: TAKES WITH RESTORIL
     Route: 065
  5. TRYPTOPHAN [Concomitant]
     Active Substance: TRYPTOPHAN
     Indication: SLEEP DISORDER
  6. MELATONIN [Concomitant]
     Active Substance: MELATONIN
  7. DURAGESIC [Concomitant]
     Active Substance: FENTANYL
     Indication: PAIN
     Route: 062
  8. CARISOPRODOL. [Concomitant]
     Active Substance: CARISOPRODOL
  9. OXCARBAZEPINE. [Concomitant]
     Active Substance: OXCARBAZEPINE
     Indication: MUSCLE SPASMS
  10. KLONOPIN [Suspect]
     Active Substance: CLONAZEPAM
     Indication: STRESS
     Dosage: BEEN ON FOR 3 YEARS
     Route: 065
  11. RESTORIL (UNITED STATES) [Concomitant]

REACTIONS (2)
  - Pain [Not Recovered/Not Resolved]
  - Drug ineffective [Unknown]
